FAERS Safety Report 7957393 (Version 2)
Quarter: 2012Q4

REPORT INFORMATION
  Report Type: 
  Country: MX (occurrence: MX)
  Receive Date: 20110524
  Receipt Date: 20120906
  Transmission Date: 20130627
  Serious: Yes (Death)
  Sender: FDA-Public Use
  Company Number: PHHY2011MX43099

PATIENT
  Age: 68 Year
  Sex: Male

DRUGS (1)
  1. ZOMETA [Suspect]
     Indication: PROSTATE CANCER
     Dosage: 4 mg, by month
     Route: 042
     Dates: start: 20110426

REACTIONS (1)
  - Prostate cancer [Fatal]
